FAERS Safety Report 22215695 (Version 1)
Quarter: 2023Q2

REPORT INFORMATION
  Report Type: Spontaneous
  Country: JP (occurrence: JP)
  Receive Date: 20230416
  Receipt Date: 20230416
  Transmission Date: 20230721
  Serious: Yes (Hospitalization, Other)
  Sender: FDA-Public Use
  Company Number: JP-002147023-NVSJ2023JP006154

PATIENT
  Age: 51 Year
  Sex: Male
  Weight: 110 kg

DRUGS (31)
  1. ENTRESTO [Suspect]
     Active Substance: SACUBITRIL\VALSARTAN
     Indication: Cardiac failure chronic
     Dosage: 50 MG, BID
     Route: 048
     Dates: start: 20210527, end: 20210615
  2. ENTRESTO [Suspect]
     Active Substance: SACUBITRIL\VALSARTAN
     Dosage: 100 MG, BID
     Route: 048
     Dates: start: 20210616, end: 20210716
  3. ENTRESTO [Suspect]
     Active Substance: SACUBITRIL\VALSARTAN
     Dosage: 200 MG, BID
     Route: 048
     Dates: start: 20210717, end: 20210827
  4. ENTRESTO [Suspect]
     Active Substance: SACUBITRIL\VALSARTAN
     Dosage: 50 MG, BID
     Route: 048
     Dates: start: 20210915, end: 20210928
  5. ENTRESTO [Suspect]
     Active Substance: SACUBITRIL\VALSARTAN
     Dosage: 100 MG, BID
     Route: 048
     Dates: start: 20210929, end: 20211014
  6. ENTRESTO [Suspect]
     Active Substance: SACUBITRIL\VALSARTAN
     Dosage: 200 MG, BID
     Route: 048
     Dates: start: 20211015
  7. SAMSCA [Suspect]
     Active Substance: TOLVAPTAN
     Indication: Cardiac failure chronic
     Dosage: UNK
     Route: 048
     Dates: start: 2013, end: 2020
  8. SAMSCA [Suspect]
     Active Substance: TOLVAPTAN
     Dosage: 3.75 MG
     Route: 048
     Dates: start: 2020, end: 20210714
  9. SAMSCA [Suspect]
     Active Substance: TOLVAPTAN
     Dosage: 7.5 MG
     Route: 048
     Dates: start: 20210715, end: 20210813
  10. SAMSCA [Suspect]
     Active Substance: TOLVAPTAN
     Dosage: 3.75 MG
     Route: 048
     Dates: start: 20210814, end: 20211009
  11. SAMSCA [Suspect]
     Active Substance: TOLVAPTAN
     Dosage: 7.5 MG
     Route: 048
     Dates: start: 20211010
  12. BISOPROLOL [Concomitant]
     Active Substance: BISOPROLOL
     Indication: Cardiac failure chronic
     Dosage: 5 MG
     Route: 048
  13. CARVEDILOL [Concomitant]
     Active Substance: CARVEDILOL
     Indication: Cardiac failure chronic
     Dosage: 10 MG
     Route: 048
  14. PIMOBENDAN [Concomitant]
     Active Substance: PIMOBENDAN
     Indication: Product used for unknown indication
     Dosage: 2.5 MG
     Route: 048
     Dates: end: 20210718
  15. PIMOBENDAN [Concomitant]
     Active Substance: PIMOBENDAN
     Dosage: 2.5 MG, BID
     Route: 048
     Dates: start: 20210719
  16. EPLERENONE [Concomitant]
     Active Substance: EPLERENONE
     Indication: Cardiac failure chronic
     Dosage: 25 MG
     Route: 048
     Dates: end: 20210827
  17. EPLERENONE [Concomitant]
     Active Substance: EPLERENONE
     Dosage: 12.5 MG
     Route: 048
     Dates: start: 20210908, end: 20210914
  18. EPLERENONE [Concomitant]
     Active Substance: EPLERENONE
     Dosage: 25 MG
     Route: 048
     Dates: start: 20210915
  19. DAPAGLIFLOZIN [Concomitant]
     Active Substance: DAPAGLIFLOZIN
     Indication: Cardiac failure chronic
     Dosage: 10 MG
     Route: 048
  20. FUROSEMIDE [Concomitant]
     Active Substance: FUROSEMIDE
     Indication: Cardiac failure chronic
     Dosage: 10 MG
     Route: 048
     Dates: end: 20210726
  21. FUROSEMIDE [Concomitant]
     Active Substance: FUROSEMIDE
     Dosage: 20 MG
     Route: 048
     Dates: start: 20220512, end: 20220728
  22. FUROSEMIDE [Concomitant]
     Active Substance: FUROSEMIDE
     Dosage: 20 MG
     Route: 048
     Dates: start: 20220825
  23. CARPERITIDE [Concomitant]
     Active Substance: CARPERITIDE
     Indication: Cardiac failure chronic
     Dosage: 0.01 UG/KG/MIN
     Route: 065
     Dates: start: 20210527, end: 20210608
  24. CARPERITIDE [Concomitant]
     Active Substance: CARPERITIDE
     Dosage: 0.01 UG/KG/MIN
     Route: 065
     Dates: start: 20210715, end: 20210727
  25. TRICHLORMETHIAZIDE [Concomitant]
     Active Substance: TRICHLORMETHIAZIDE
     Indication: Cardiac failure chronic
     Dosage: 0.5 MG
     Route: 048
     Dates: end: 20210827
  26. ALLOPURINOL [Concomitant]
     Active Substance: ALLOPURINOL
     Indication: Product used for unknown indication
     Dosage: 100 MG
     Route: 048
  27. AZOSEMIDE [Concomitant]
     Active Substance: AZOSEMIDE
     Indication: Product used for unknown indication
     Dosage: 30 MG
     Route: 065
     Dates: start: 20210726, end: 20210826
  28. AZOSEMIDE [Concomitant]
     Active Substance: AZOSEMIDE
     Dosage: 15 MG
     Route: 065
     Dates: start: 20210827, end: 20210914
  29. AZOSEMIDE [Concomitant]
     Active Substance: AZOSEMIDE
     Dosage: 30 MG
     Route: 065
     Dates: start: 20210915, end: 20220413
  30. AZOSEMIDE [Concomitant]
     Active Substance: AZOSEMIDE
     Dosage: 15 MG
     Route: 065
     Dates: start: 20220414
  31. AMIODARONE [Concomitant]
     Active Substance: AMIODARONE
     Indication: Product used for unknown indication
     Dosage: 200 MG, QD
     Route: 048
     Dates: start: 20210807

REACTIONS (8)
  - Cardiac failure [Unknown]
  - Dyspnoea [Unknown]
  - Acute kidney injury [Unknown]
  - Decreased appetite [Unknown]
  - Malaise [Unknown]
  - Dehydration [Unknown]
  - Blood pressure decreased [Unknown]
  - Cardiomyopathy [Unknown]
